FAERS Safety Report 9779848 (Version 1)
Quarter: 2013Q4

REPORT INFORMATION
  Report Type: Spontaneous
  Country: US (occurrence: US)
  Receive Date: 20131223
  Receipt Date: 20131223
  Transmission Date: 20140711
  Serious: Yes (Other)
  Sender: FDA-Public Use
  Company Number: PHHY2013US146284

PATIENT
  Age: 69 Year
  Sex: Male

DRUGS (8)
  1. BUDESONIDE [Suspect]
     Indication: IMMUNOSUPPRESSION
  2. TACROLIMUS [Suspect]
     Indication: IMMUNOSUPPRESSION
     Dosage: 1 MG, BID
  3. METHOTREXATE [Suspect]
     Indication: IMMUNOSUPPRESSION
  4. PREDNISONE [Suspect]
     Indication: IMMUNOSUPPRESSION
     Route: 048
  5. SIROLIMUS [Suspect]
     Indication: IMMUNOSUPPRESSION
  6. MELPHALAN [Concomitant]
     Indication: TRANSPLANT REJECTION
     Dosage: 140 MG/M2, UNK
  7. FLUDARABINE [Concomitant]
     Indication: TRANSPLANT REJECTION
     Dosage: 125 MG/M2, UNK
  8. SULFAMETHOXAZOLE [Concomitant]

REACTIONS (10)
  - Kaposi^s sarcoma [Unknown]
  - Pain [Unknown]
  - Lymphadenopathy [Recovered/Resolved]
  - Bone marrow failure [Unknown]
  - White blood cell count decreased [Unknown]
  - Platelet count decreased [Unknown]
  - Haemoglobin decreased [Unknown]
  - Human herpesvirus 8 infection [Unknown]
  - Graft versus host disease in intestine [Unknown]
  - Graft versus host disease in skin [Unknown]
